FAERS Safety Report 5042393-0 (Version None)
Quarter: 2006Q3

REPORT INFORMATION
  Report Type: 
  Country: None (occurrence: None)
  Receive Date: 20060705
  Receipt Date: 20060601
  Transmission Date: 20061208
  Serious: Yes (Hospitalization, Other)
  Sender: FDA-Public Use
  Company Number: FR-BRISTOL-MYERS SQUIBB COMPANY-13400122

PATIENT
  Age: 69 Year
  Sex: Male
  Weight: 115 kg

DRUGS (5)
  1. COAPROVEL TABS 150MG/12.5MG [Suspect]
     Indication: HYPERTENSION
     Route: 048
     Dates: start: 20050301, end: 20050329
  2. COAPROVEL TABS 150MG/12.5MG [Suspect]
     Route: 048
     Dates: start: 20060301, end: 20060415
  3. PRAVASTATIN [Concomitant]
  4. ALLOPURINOL [Concomitant]
  5. ASPIRIN [Concomitant]
     Dates: start: 20010101

REACTIONS (7)
  - ABDOMINAL PAIN UPPER [None]
  - HYPOTENSION [None]
  - LOSS OF CONSCIOUSNESS [None]
  - MALAISE [None]
  - NAUSEA [None]
  - PALLOR [None]
  - SOMNOLENCE [None]
